FAERS Safety Report 9627208 (Version 2)
Quarter: 2013Q4

REPORT INFORMATION
  Report Type: Not Available
  Country: US (occurrence: US)
  Receive Date: 20131016
  Receipt Date: 20131016
  Transmission Date: 20140711
  Serious: Yes (Other)
  Sender: FDA-Public Use
  Company Number: US-LUNDBECK-DKLU1084046

PATIENT
  Age: 5 Month
  Sex: Female

DRUGS (13)
  1. SABRIL (FOR ORAL SOLUTION) [Suspect]
     Indication: AICARDI^S SYNDROME
     Route: 048
     Dates: start: 20120229
  2. SABRIL (FOR ORAL SOLUTION) [Suspect]
     Indication: INFANTILE SPASMS
     Route: 048
     Dates: start: 201206
  3. SABRIL (FOR ORAL SOLUTION) [Suspect]
     Indication: TONIC CONVULSION
     Route: 048
     Dates: start: 201206, end: 20120703
  4. SABRIL (FOR ORAL SOLUTION) [Suspect]
     Route: 048
     Dates: start: 20120703
  5. KEPPRA [Concomitant]
     Indication: AICARDI^S SYNDROME
  6. KEPPRA [Concomitant]
     Indication: INFANTILE SPASMS
  7. KEPPRA [Concomitant]
     Indication: TONIC CONVULSION
  8. ZONEGRAN [Concomitant]
     Indication: AICARDI^S SYNDROME
     Dates: start: 201206
  9. ZONEGRAN [Concomitant]
     Indication: INFANTILE SPASMS
  10. ZONEGRAN [Concomitant]
     Indication: TONIC CONVULSION
  11. KLONOPIN [Concomitant]
     Indication: AICARDI^S SYNDROME
     Dates: end: 20120717
  12. KLONOPIN [Concomitant]
     Indication: INFANTILE SPASMS
     Dates: start: 20120717
  13. KLONOPIN [Concomitant]
     Indication: TONIC CONVULSION

REACTIONS (2)
  - Convulsion [Recovering/Resolving]
  - Upper respiratory tract infection [Recovered/Resolved]
